FAERS Safety Report 6436554-3 (Version None)
Quarter: 2009Q4

REPORT INFORMATION
  Report Type: 
  Country: None (occurrence: None)
  Receive Date: 20091110
  Receipt Date: 20091110
  Transmission Date: 20100525
  Serious: No
  Sender: FDA-Public Use
  Company Number: None

PATIENT
  Age: 56 Year
  Sex: Female
  Weight: 74.84 kg

DRUGS (1)
  1. TRIMETHOPRIM-SULFAMETHOXAZOLE [Suspect]
     Indication: PROPHYLAXIS URINARY TRACT INFECTION
     Dosage: 1 TAB EVERY DAY PO
     Route: 048
     Dates: start: 20081124, end: 20090323

REACTIONS (2)
  - PRURITUS [None]
  - URTICARIA [None]
